APPROVED DRUG PRODUCT: BRUKINSA
Active Ingredient: ZANUBRUTINIB
Strength: 160MG
Dosage Form/Route: TABLET;ORAL
Application: N218785 | Product #001
Applicant: BEONE MEDICINES USA INC
Approved: Jun 10, 2025 | RLD: Yes | RS: Yes | Type: RX

PATENTS:
Patent 11896596 | Expires: Jan 19, 2043
Patent 11896596 | Expires: Jan 19, 2043
Patent 11896596 | Expires: Jan 19, 2043
Patent 11896596 | Expires: Jan 19, 2043
Patent 11896596 | Expires: Jan 19, 2043
Patent 11896596 | Expires: Jan 19, 2043
Patent 11896596 | Expires: Jan 19, 2043
Patent 11884674 | Expires: Aug 15, 2037
Patent 11884674 | Expires: Aug 15, 2037
Patent 11884674 | Expires: Aug 15, 2037
Patent 11884674 | Expires: Aug 15, 2037
Patent 11884674 | Expires: Aug 15, 2037
Patent 11884674 | Expires: Aug 15, 2037
Patent 11884674 | Expires: Aug 15, 2037
Patent 11786531 | Expires: Jan 19, 2043
Patent 11786531 | Expires: Jan 19, 2043
Patent 11786531 | Expires: Jan 19, 2043
Patent 11786531 | Expires: Jan 19, 2043
Patent 11786531 | Expires: Jan 19, 2043
Patent 11786531 | Expires: Jan 19, 2043
Patent 11786531 | Expires: Jan 19, 2043
Patent 11701357 | Expires: Jun 24, 2039
Patent 11591340 | Expires: Aug 15, 2037
Patent 11591340 | Expires: Aug 15, 2037
Patent 11591340 | Expires: Aug 15, 2037
Patent 11591340 | Expires: Aug 15, 2037
Patent 11591340 | Expires: Aug 15, 2037
Patent 11970500 | Expires: Aug 15, 2037
Patent 11970500 | Expires: Aug 15, 2037
Patent 11970500 | Expires: Aug 15, 2037
Patent 11970500 | Expires: Aug 15, 2037
Patent 11970500 | Expires: Aug 15, 2037
Patent 11970500 | Expires: Aug 15, 2037
Patent 11970500 | Expires: Aug 15, 2037
Patent 11911386 | Expires: Jan 19, 2043
Patent 11911386 | Expires: Jan 19, 2043
Patent 11911386 | Expires: Jan 19, 2043
Patent 11911386 | Expires: Jan 19, 2043
Patent 11911386 | Expires: Jan 19, 2043
Patent 11911386 | Expires: Jan 19, 2043
Patent 11911386 | Expires: Jan 19, 2043
Patent 11591340 | Expires: Aug 15, 2037
Patent 11591340 | Expires: Aug 15, 2037
Patent 11591340 | Expires: Aug 15, 2037
Patent 11591340 | Expires: Aug 15, 2037
Patent 11142528 | Expires: Apr 22, 2034
Patent 11142528 | Expires: Apr 22, 2034
Patent 11142528 | Expires: Apr 22, 2034
Patent 11142528 | Expires: Apr 22, 2034
Patent 11142528 | Expires: Apr 22, 2034
Patent 11142528 | Expires: Apr 22, 2034
Patent 11142528 | Expires: Apr 22, 2034
Patent 10570139 | Expires: Apr 22, 2034
Patent 10570139 | Expires: Apr 22, 2034
Patent 10570139 | Expires: Apr 22, 2034
Patent 10570139 | Expires: Apr 22, 2034
Patent 10570139 | Expires: Apr 22, 2034
Patent 10570139 | Expires: Apr 22, 2034
Patent 10570139 | Expires: Apr 22, 2034
Patent 9447106 | Expires: Apr 22, 2034
Patent 9447106 | Expires: Apr 22, 2034
Patent 9447106 | Expires: Apr 22, 2034
Patent 9447106 | Expires: Apr 22, 2034
Patent 9447106 | Expires: Apr 22, 2034
Patent 9447106 | Expires: Apr 22, 2034
Patent 9447106 | Expires: Apr 22, 2034
Patent 10927117 | Expires: Aug 15, 2037
Patent 12233069 | Expires: Jun 10, 2040
Patent 11851437 | Expires: Aug 15, 2037

EXCLUSIVITY:
Code: I-817 | Date: Jan 19, 2026
Code: I-936 | Date: Mar 7, 2027
Code: ODE* | Date: Nov 14, 2026
Code: ODE* | Date: Sep 14, 2028
Code: ODE* | Date: Jan 19, 2030
Code: ODE* | Date: Aug 31, 2028
Code: ODE* | Date: Mar 7, 2031